FAERS Safety Report 14401576 (Version 1)
Quarter: 2018Q1

REPORT INFORMATION
  Report Type: Spontaneous
  Country: US (occurrence: US)
  Receive Date: 20180117
  Receipt Date: 20180117
  Transmission Date: 20180509
  Serious: Yes (Other)
  Sender: FDA-Public Use
  Company Number: US-ASTRAZENECA-2018SE04406

PATIENT
  Age: 77 Year
  Sex: Female
  Weight: 57.6 kg

DRUGS (18)
  1. TAMOXIFEN [Suspect]
     Active Substance: TAMOXIFEN
     Indication: PERITONEAL NEOPLASM
     Dosage: DAILY
     Route: 048
     Dates: start: 20160414, end: 20160713
  2. MIRALAX [Concomitant]
     Active Substance: POLYETHYLENE GLYCOL 3350
     Indication: CONSTIPATION PROPHYLAXIS
     Dosage: EVERY OTHER DAY
     Route: 048
  3. AMLODIPINE [Concomitant]
     Active Substance: AMLODIPINE BESYLATE
     Dosage: 50 MG
  4. GEMZAR [Concomitant]
     Active Substance: GEMCITABINE HYDROCHLORIDE
     Indication: PERITONEAL NEOPLASM
     Route: 041
     Dates: start: 20160719
  5. CYCLOPHOSPHAMIDE. [Concomitant]
     Active Substance: CYCLOPHOSPHAMIDE
     Indication: PERITONEAL NEOPLASM
     Route: 048
     Dates: start: 20170419
  6. CARBOPLATIN. [Concomitant]
     Active Substance: CARBOPLATIN
     Indication: PERITONEAL NEOPLASM
     Route: 041
     Dates: start: 201407
  7. VITAMIN B6 [Concomitant]
     Active Substance: PYRIDOXINE HYDROCHLORIDE
     Indication: SUPPLEMENTATION THERAPY
     Route: 048
  8. LYNPARZA [Suspect]
     Active Substance: OLAPARIB
     Indication: PERITONEAL NEOPLASM
     Route: 048
  9. CALCIUM [Concomitant]
     Active Substance: CALCIUM
     Indication: OSTEOPOROSIS
     Route: 048
  10. VITAMIN D3 [Concomitant]
     Active Substance: CHOLECALCIFEROL
     Indication: SUPPLEMENTATION THERAPY
     Route: 048
  11. AVASTIN [Concomitant]
     Active Substance: BEVACIZUMAB
     Indication: PERITONEAL NEOPLASM
     Route: 041
     Dates: start: 20170208
  12. PROLIA [Concomitant]
     Active Substance: DENOSUMAB
     Indication: OSTEOPOROSIS
     Route: 041
  13. GLUCOSAMINE SULFATE [Concomitant]
     Active Substance: GLUCOSAMINE SULFATE
     Indication: ARTHRALGIA
     Route: 048
  14. AMLODIPINE [Concomitant]
     Active Substance: AMLODIPINE BESYLATE
     Dosage: DOSE DOUBLED
  15. LYNPARZA [Suspect]
     Active Substance: OLAPARIB
     Indication: PERITONEAL NEOPLASM
     Dosage: TAKE ONE 100 MG TABLET AND ONE 150 MG TABLET
     Route: 048
     Dates: start: 20171124
  16. MULTIVITAMIN [Concomitant]
     Active Substance: VITAMINS
     Indication: SUPPLEMENTATION THERAPY
     Dosage: DAILY
     Route: 048
  17. VALSARTAN. [Concomitant]
     Active Substance: VALSARTAN
  18. AMLODIPINE [Concomitant]
     Active Substance: AMLODIPINE BESYLATE

REACTIONS (6)
  - Malignant neoplasm progression [Unknown]
  - Viral infection [Unknown]
  - Carbohydrate antigen 125 increased [Recovered/Resolved]
  - Hair disorder [Not Recovered/Not Resolved]
  - Hypertension [Recovered/Resolved]
  - Neuropathy peripheral [Recovered/Resolved]

NARRATIVE: CASE EVENT DATE: 2016
